FAERS Safety Report 4330009-8 (Version None)
Quarter: 2004Q1

REPORT INFORMATION
  Report Type: 
  Country: None (occurrence: None)
  Receive Date: 20040329
  Receipt Date: 20040317
  Transmission Date: 20041129
  Serious: No
  Sender: FDA-Public Use
  Company Number: 04H-083-0253947-00

PATIENT

DRUGS (10)
  1. LEUCOVORIN CALCIUM [Suspect]
     Indication: CHEMOTHERAPY
     Dosage: 250 MG/M2, OVER 2 HOURS, EVERY 3 WEEKS, INTRAVENOUS
     Route: 042
  2. EPIRUBICIN [Suspect]
     Indication: CHEMOTHERAPY
     Dosage: 60 MG/M2, EVERY 3 WEEKS, INTRAVENOUS BOLUS
     Route: 040
  3. FLUOROURACIL [Suspect]
     Indication: CHEMOTHERAPY
     Dosage: 3800 MG/M2, EVERY 3 WEEKS, INTRAVENOUS
     Route: 042
  4. FUROSEMIDE [Concomitant]
  5. POTASSIUM CHLORIDE [Concomitant]
  6. ONDANSETRON HCL [Concomitant]
  7. DESAMETAZONE [Concomitant]
  8. SODIUM CHLORIDE INJ [Concomitant]
  9. 5-HT3 ANTAGONIST [Concomitant]
  10. CISPLATIN [Suspect]
     Indication: CHEMOTHERAPY
     Dosage: 60MG/M2,OVER 30MIN, Q3 WEEKS
     Route: 042

REACTIONS (1)
  - NEUTROPENIA [None]
